FAERS Safety Report 8978931 (Version 3)
Quarter: 2013Q1

REPORT INFORMATION
  Report Type: Spontaneous
  Country: US (occurrence: US)
  Receive Date: 20121220
  Receipt Date: 20130312
  Transmission Date: 20140127
  Serious: Yes (Death, Hospitalization, Other)
  Sender: FDA-Public Use
  Company Number: US-009507513-1212USA007834

PATIENT
  Sex: Female

DRUGS (1)
  1. NUVARING [Suspect]
     Indication: CONTRACEPTION
     Dosage: UNK
     Route: 067
     Dates: start: 201008, end: 20101022

REACTIONS (13)
  - Pulmonary embolism [Fatal]
  - Cardiac arrest [Fatal]
  - Headache [Unknown]
  - Sinus tachycardia [Unknown]
  - Cardiomegaly [Unknown]
  - Lip injury [Unknown]
  - Excoriation [Unknown]
  - Laceration [Unknown]
  - Traumatic liver injury [Unknown]
  - Cholesterosis [Unknown]
  - Hepatic steatosis [Unknown]
  - Fall [Unknown]
  - Haemorrhage intracranial [Unknown]
